FAERS Safety Report 9014495 (Version 1)
Quarter: 2013Q1

REPORT INFORMATION
  Report Type: Spontaneous
  Country: US (occurrence: US)
  Receive Date: 20130115
  Receipt Date: 20130115
  Transmission Date: 20140127
  Serious: Yes (Death)
  Sender: FDA-Public Use
  Company Number: US-JNJFOC-20130105424

PATIENT
  Age: 15 Year
  Sex: Female

DRUGS (7)
  1. IBUPROFEN [Suspect]
     Indication: SUICIDE ATTEMPT
     Route: 048
  2. METHADONE [Suspect]
     Indication: SUICIDE ATTEMPT
     Route: 048
  3. SERTRALINE [Suspect]
     Indication: SUICIDE ATTEMPT
     Route: 048
  4. BACLOFEN [Suspect]
     Indication: SUICIDE ATTEMPT
     Route: 048
  5. ONDANSETRON [Suspect]
     Indication: SUICIDE ATTEMPT
     Route: 048
  6. ACETAMINOPHEN / HYDROCODONE [Suspect]
     Indication: SUICIDE ATTEMPT
     Route: 048
  7. LEVOTHYROXINE [Suspect]
     Indication: SUICIDE ATTEMPT
     Route: 048

REACTIONS (4)
  - Toxicity to various agents [Fatal]
  - Completed suicide [None]
  - Cardiac arrest [None]
  - Respiratory arrest [None]
